FAERS Safety Report 7080561-7 (Version None)
Quarter: 2010Q4

REPORT INFORMATION
  Report Type: 
  Country: None (occurrence: None)
  Receive Date: 20101103
  Receipt Date: 20101026
  Transmission Date: 20110411
  Serious: Yes (Life-Threatening, Hospitalization)
  Sender: FDA-Public Use
  Company Number: RU-JNJFOC-20100807107

PATIENT
  Age: 25 Year
  Sex: Male
  Weight: 89 kg

DRUGS (7)
  1. BLINDED; INFLIXIMAB, RECOMBINANT [Suspect]
     Indication: ANKYLOSING SPONDYLITIS
     Dosage: WEEKS 0, 2, 6, 12, 18 AND 24.
     Route: 042
  2. PLACEBO [Suspect]
     Indication: ANKYLOSING SPONDYLITIS
     Route: 042
  3. ERYTHROMYCIN [Concomitant]
  4. PEFLOXACIN [Concomitant]
  5. FLUCONAZOLE [Concomitant]
  6. CEFOTAXIME SODIUM [Concomitant]
  7. NAPROXEN [Concomitant]
     Indication: ANKYLOSING SPONDYLITIS
     Route: 048

REACTIONS (2)
  - PNEUMONIA [None]
  - TUBERCULOSIS [None]
